FAERS Safety Report 9070863 (Version 1)
Quarter: 2013Q1

REPORT INFORMATION
  Report Type: Spontaneous
  Country: FR (occurrence: FR)
  Receive Date: 20130129
  Receipt Date: 20130129
  Transmission Date: 20140127
  Serious: Yes (Life-Threatening, Hospitalization)
  Sender: FDA-Public Use
  Company Number: FR-MUTUAL PHARMACEUTICAL COMPANY, INC.-IBPF20130006

PATIENT
  Age: 45 Year
  Sex: Male

DRUGS (5)
  1. IBUPROFEN [Suspect]
     Indication: PERITONSILLAR ABSCESS
     Route: 048
     Dates: start: 201111, end: 201111
  2. CEFOTIAM [Suspect]
     Indication: PERITONSILLAR ABSCESS
     Route: 048
     Dates: start: 201111, end: 201111
  3. OLMETEC (OLMESARTAN MEDOXOMIL) [Concomitant]
     Indication: HYPERTENSION
     Route: 065
  4. NEBIVOLOL (NEBIVOLOL) [Concomitant]
     Indication: HYPERTENSION
     Route: 065
  5. PRAVASTATINE (PRAVASTATIN SODIUM) [Concomitant]
     Indication: DYSLIPIDAEMIA
     Route: 065

REACTIONS (3)
  - Dyspnoea [Recovered/Resolved]
  - Dysphonia [Recovered/Resolved]
  - Dysphagia [Recovered/Resolved]
